FAERS Safety Report 23055276 (Version 1)
Quarter: 2023Q4

REPORT INFORMATION
  Report Type: Spontaneous
  Country: US (occurrence: None)
  Receive Date: 20231011
  Receipt Date: 20231011
  Transmission Date: 20240109
  Serious: Yes (Other)
  Sender: FDA-Public Use
  Company Number: None

PATIENT
  Age: 48 Year
  Sex: Male
  Weight: 69.75 kg

DRUGS (1)
  1. .DELTA.9-TETRAHYDROCANNABINOL\CANNABIDIOL\HERBALS [Suspect]
     Active Substance: .DELTA.9-TETRAHYDROCANNABINOL\CANNABIDIOL\HERBALS
     Indication: Anxiety
     Dates: start: 20200301, end: 20230404

REACTIONS (6)
  - Product label on wrong product [None]
  - Job dissatisfaction [None]
  - Product formulation issue [None]
  - Product use issue [None]
  - Product advertising issue [None]
  - Product label issue [None]

NARRATIVE: CASE EVENT DATE: 20230404
